FAERS Safety Report 19036729 (Version 2)
Quarter: 2021Q2

REPORT INFORMATION
  Report Type: Spontaneous
  Country: IT (occurrence: IT)
  Receive Date: 20210322
  Receipt Date: 20210409
  Transmission Date: 20210717
  Serious: Yes (Other)
  Sender: FDA-Public Use
  Company Number: IT-ROCHE-2792960

PATIENT
  Age: 50 Year
  Sex: Female

DRUGS (1)
  1. OCREVUS [Suspect]
     Active Substance: OCRELIZUMAB
     Indication: PROGRESSIVE MULTIPLE SCLEROSIS
     Dosage: ON 06/MAY/2020, MOST RECENT DOSE
     Route: 042
     Dates: start: 20191022

REACTIONS (1)
  - Ovarian granulosa cell tumour [Recovered/Resolved]

NARRATIVE: CASE EVENT DATE: 20201029
